FAERS Safety Report 18188435 (Version 1)
Quarter: 2020Q3

REPORT INFORMATION
  Report Type: Spontaneous
  Country: SE (occurrence: SE)
  Receive Date: 20200824
  Receipt Date: 20200824
  Transmission Date: 20201103
  Serious: Yes (Other)
  Sender: FDA-Public Use
  Company Number: SE-MYLANLABS-2020M1073023

PATIENT
  Sex: Male

DRUGS (2)
  1. MODAFINIL ?MYLAN?, TABLETTER [Suspect]
     Active Substance: MODAFINIL
     Indication: PERSISTENT DEPRESSIVE DISORDER
     Dosage: 100 MILLIGRAM, BID, 2 PILLS PER DAY
     Dates: start: 202004
  2. SERTRALINE [Concomitant]
     Active Substance: SERTRALINE HYDROCHLORIDE
     Dosage: 150 MILLIGRAM, QD
     Dates: start: 202006

REACTIONS (2)
  - Product use in unapproved indication [Unknown]
  - Drug dependence [Unknown]
